FAERS Safety Report 23731467 (Version 1)
Quarter: 2024Q2

REPORT INFORMATION
  Report Type: Spontaneous
  Country: IN (occurrence: IN)
  Receive Date: 20240411
  Receipt Date: 20240411
  Transmission Date: 20240716
  Serious: Yes (Death, Other)
  Sender: FDA-Public Use
  Company Number: IN-STERISCIENCE B.V.-2024-ST-000414

PATIENT
  Age: 28 Year
  Sex: Female

DRUGS (1)
  1. MIDAZOLAM [Suspect]
     Active Substance: MIDAZOLAM
     Indication: Product used for unknown indication
     Dosage: UNK
     Route: 042

REACTIONS (4)
  - Completed suicide [Fatal]
  - Intentional overdose [Fatal]
  - Toxicity to various agents [Fatal]
  - Respiratory failure [Fatal]
